FAERS Safety Report 23872334 (Version 1)
Quarter: 2024Q2

REPORT INFORMATION
  Report Type: Spontaneous
  Country: DE (occurrence: DE)
  Receive Date: 20240520
  Receipt Date: 20240520
  Transmission Date: 20240715
  Serious: Yes (Hospitalization, Other)
  Sender: FDA-Public Use
  Company Number: None

PATIENT
  Age: 92 Year
  Sex: Male

DRUGS (9)
  1. SPIRONOLACTONE [Suspect]
     Active Substance: SPIRONOLACTONE
     Indication: Product used for unknown indication
     Dosage: STRENGTH:  50 MG; 1-0-0
     Dates: end: 20240407
  2. INSULIN LISPRO PROTAMINE SUSPENSION [Concomitant]
     Dosage: 1-1-1-1
  3. AMLODIPINE [Concomitant]
     Active Substance: AMLODIPINE BESYLATE
     Dosage: STRENGTH: 5 MG; -0-1; TAKING FOR AT LEAST 3 MONTHS, PROBABLY SIGNIFICANTLY LONGER
     Dates: end: 20240409
  4. PREGABALIN [Concomitant]
     Active Substance: PREGABALIN
     Dosage: STRENGTH: 25 MG; 0-0-1; TAKING FOR AT LEAST 3 MONTHS, PROBABLY SIGNIFICANTLY LONGER
     Dates: end: 20240408
  5. TAMSULOSIN [Concomitant]
     Active Substance: TAMSULOSIN
     Dosage: STRENGTH: 0.4MG; 0-0-1, TAKING FOR AT LEAST 3 MONTHS, PROBABLY SIGNIFICANTLY LONGER
     Dates: end: 20240408
  6. PANTOPRAZOLE [Concomitant]
     Active Substance: PANTOPRAZOLE
     Dosage: STRENGTH: 20 MG; 1-0-0 TAKING FOR AT LEAST 3 MONTHS, PROBABLY SIGNIFICANTLY LONGER
     Dates: end: 20240409
  7. ATORVASTATIN [Concomitant]
     Active Substance: ATORVASTATIN
     Dosage: STRENGTH: 10MG; 0-0-1 TAKING FOR AT LEAST 3 MONTHS, PROBABLY SIGNIFICANTLY LONGER
     Dates: end: 20240408
  8. PIPERACILLIN AND TAZOBACTAM [Concomitant]
     Active Substance: PIPERACILLIN SODIUM\TAZOBACTAM SODIUM
     Indication: Infection
     Dosage: STRENGTH: 4.5G; 1-1-1
     Dates: start: 20240403, end: 20240409
  9. ELIQUIS [Concomitant]
     Active Substance: APIXABAN
     Dosage: STRENGTH: 2.5 MG; 1-0-1 TAKING FOR AT LEAST 3 MONTHS, PROBABLY SIGNIFICANTLY LONGER (YEARS)
     Dates: end: 20240409

REACTIONS (2)
  - Neutropenia [Not Recovered/Not Resolved]
  - Agranulocytosis [Not Recovered/Not Resolved]

NARRATIVE: CASE EVENT DATE: 20240409
